FAERS Safety Report 12331700 (Version 1)
Quarter: 2016Q2

REPORT INFORMATION
  Report Type: Spontaneous
  Country: BR (occurrence: BR)
  Receive Date: 20160504
  Receipt Date: 20160504
  Transmission Date: 20160815
  Serious: Yes (Other)
  Sender: FDA-Public Use
  Company Number: BR-JNJFOC-20151019431

PATIENT
  Age: 59 Year
  Sex: Female
  Weight: 54 kg

DRUGS (4)
  1. SIMPONI [Suspect]
     Active Substance: GOLIMUMAB
     Indication: RHEUMATOID ARTHRITIS
     Dosage: 0,5 ML
     Route: 058
     Dates: start: 20150704
  2. SIMPONI [Suspect]
     Active Substance: GOLIMUMAB
     Indication: RHEUMATOID ARTHRITIS
     Route: 058
  3. PURAN [Concomitant]
     Active Substance: LEVOTHYROXINE SODIUM
     Indication: HYPOTHYROIDISM
     Route: 065
  4. LEVOTHYROXINE. [Concomitant]
     Active Substance: LEVOTHYROXINE
     Route: 065

REACTIONS (10)
  - Inappropriate schedule of drug administration [Recovered/Resolved]
  - Application site bruise [Not Recovered/Not Resolved]
  - Device malfunction [Unknown]
  - Application site pain [Not Recovered/Not Resolved]
  - Asthenia [Unknown]
  - Accidental exposure to product [Unknown]
  - Underdose [Unknown]
  - Nasopharyngitis [Unknown]
  - Wrong technique in product usage process [Unknown]
  - Decreased immune responsiveness [Unknown]

NARRATIVE: CASE EVENT DATE: 2015
